FAERS Safety Report 7193546-7 (Version None)
Quarter: 2010Q4

REPORT INFORMATION
  Report Type: 
  Country: None (occurrence: None)
  Receive Date: 20101223
  Receipt Date: 20101214
  Transmission Date: 20110411
  Serious: Yes (Other)
  Sender: FDA-Public Use
  Company Number: US-BAYER-2010-005015

PATIENT
  Sex: Female
  Weight: 59 kg

DRUGS (1)
  1. ASPIRIN [Suspect]

REACTIONS (6)
  - BACTERIAL INFECTION [None]
  - BLISTER [None]
  - RASH [None]
  - RASH ERYTHEMATOUS [None]
  - RASH PRURITIC [None]
  - SKIN REACTION [None]
